FAERS Safety Report 22935044 (Version 2)
Quarter: 2023Q4

REPORT INFORMATION
  Report Type: Report from Study
  Country: ES (occurrence: None)
  Receive Date: 20230912
  Receipt Date: 20231006
  Transmission Date: 20240110
  Serious: Yes (Hospitalization)
  Sender: FDA-Public Use
  Company Number: ES-ROCHE-3419952

PATIENT
  Age: 35 Year
  Sex: Female

DRUGS (5)
  1. ATEZOLIZUMAB [Suspect]
     Active Substance: ATEZOLIZUMAB
     Indication: Colorectal cancer metastatic
     Dosage: ON 21/AUG/2023, THE PATIENT RECEIVED THE MOST RECENT DOSE OF ATEZOLIZUMAB PRIOR TO THE ONSET OF COLI
     Route: 041
  2. ZANZALINTINIB [Suspect]
     Active Substance: ZANZALINTINIB
     Indication: Colorectal cancer metastatic
     Dosage: ON 01/SEP/2023, THE PATIENT RECEIVED THE MOST RECENT DOSE OF XL092 PRIOR TO THE ONSET OF COLITIS.
     Route: 048
  3. SPIRONOLACTONE [Concomitant]
     Active Substance: SPIRONOLACTONE
     Dates: start: 20230821
  4. MOTILIUM [Concomitant]
     Active Substance: DOMPERIDONE
     Dates: start: 20230827, end: 20230827
  5. TORSEMIDE [Concomitant]
     Active Substance: TORSEMIDE
     Dates: start: 20230821

REACTIONS (1)
  - Colitis [Recovered/Resolved]

NARRATIVE: CASE EVENT DATE: 20230901
